FAERS Safety Report 21825114 (Version 1)
Quarter: 2023Q1

REPORT INFORMATION
  Report Type: Report from Study
  Country: CA (occurrence: CA)
  Receive Date: 20230105
  Receipt Date: 20230105
  Transmission Date: 20230418
  Serious: Yes (Hospitalization, Other)
  Sender: FDA-Public Use
  Company Number: CA-BAUSCH-BL-2023-000221

PATIENT
  Age: 18 Year
  Sex: Female
  Weight: 72 kg

DRUGS (8)
  1. DEXAMETHASONE [Suspect]
     Active Substance: DEXAMETHASONE
     Indication: B precursor type acute leukaemia
     Dosage: NOT SPECIFIED.
     Route: 065
  2. BLINATUMOMAB [Suspect]
     Active Substance: BLINATUMOMAB
     Indication: B precursor type acute leukaemia
     Route: 042
  3. BLINATUMOMAB [Suspect]
     Active Substance: BLINATUMOMAB
     Route: 042
  4. BLINATUMOMAB [Suspect]
     Active Substance: BLINATUMOMAB
     Route: 042
  5. METHOTREXATE [Suspect]
     Active Substance: METHOTREXATE
     Indication: B precursor type acute leukaemia
     Route: 037
  6. CELEBREX [Concomitant]
     Active Substance: CELECOXIB
     Indication: Arthralgia
  7. KEPPRA [Concomitant]
     Active Substance: LEVETIRACETAM
     Indication: Product used for unknown indication
     Dosage: KEPPRA
  8. KEPPRA [Concomitant]
     Active Substance: LEVETIRACETAM

REACTIONS (4)
  - Ataxia [Recovered/Resolved]
  - Cytokine release syndrome [Recovered/Resolved]
  - Tremor [Recovered/Resolved]
  - Seizure [Recovered/Resolved]
